FAERS Safety Report 4350080-7 (Version None)
Quarter: 2004Q2

REPORT INFORMATION
  Report Type: 
  Country: None (occurrence: None)
  Receive Date: 20040429
  Receipt Date: 20030807
  Transmission Date: 20050107
  Serious: Yes (Hospitalization, Disabling)
  Sender: FDA-Public Use
  Company Number: US-MERCK-0308USA00967

PATIENT
  Age: 35 Year
  Sex: Female
  Weight: 82 kg

DRUGS (2)
  1. ZOCOR [Suspect]
     Route: 048
     Dates: start: 20020401, end: 20020602
  2. COUMADIN [Concomitant]
     Route: 065

REACTIONS (6)
  - ASTHENIA [None]
  - FATIGUE [None]
  - PAIN IN EXTREMITY [None]
  - PELVIC PAIN [None]
  - POLYMYOSITIS [None]
  - RHABDOMYOLYSIS [None]
